FAERS Safety Report 15622603 (Version 2)
Quarter: 2018Q4

REPORT INFORMATION
  Report Type: Report from Study
  Country: FR (occurrence: FR)
  Receive Date: 20181115
  Receipt Date: 20181226
  Transmission Date: 20190205
  Serious: Yes (Congenital Anomaly)
  Sender: FDA-Public Use
  Company Number: FR-PFIZER INC-2018463343

PATIENT

DRUGS (15)
  1. AMIKACIN. [Suspect]
     Active Substance: AMIKACIN
     Indication: NEOPLASM MALIGNANT
     Dosage: T2
     Route: 064
  2. LENOGRASTIM [Suspect]
     Active Substance: LENOGRASTIM
     Indication: NEOPLASM MALIGNANT
     Dosage: T3
     Route: 064
  3. RASBURICASE [Suspect]
     Active Substance: RASBURICASE
     Indication: NEOPLASM MALIGNANT
     Dosage: T2
     Route: 064
  4. PEGFILGRASTIM [Suspect]
     Active Substance: PEGFILGRASTIM
     Indication: NEOPLASM MALIGNANT
     Dosage: T2
     Route: 064
  5. CARBOPLATIN. [Suspect]
     Active Substance: CARBOPLATIN
     Indication: NEOPLASM MALIGNANT
     Dosage: T2 + T3
     Route: 064
  6. PANTOPRAZOLE [Suspect]
     Active Substance: PANTOPRAZOLE
     Indication: NEOPLASM MALIGNANT
     Dosage: T2 + T3
     Route: 064
  7. FENTANYL. [Suspect]
     Active Substance: FENTANYL
     Indication: NEOPLASM MALIGNANT
     Dosage: T2 + T3
     Route: 064
  8. OXYCODONE [Suspect]
     Active Substance: OXYCODONE
     Indication: NEOPLASM MALIGNANT
     Dosage: T2 + T3
     Route: 064
  9. PHLOROGLUCINOL [Suspect]
     Active Substance: PHLOROGLUCINOL
     Indication: NEOPLASM MALIGNANT
     Dosage: T2 + T3
     Route: 064
  10. TAZOCILLINE [Suspect]
     Active Substance: PIPERACILLIN SODIUM\TAZOBACTAM SODIUM
     Indication: NEOPLASM MALIGNANT
     Dosage: T2
     Route: 064
  11. CEFTRIAXONE SODIUM. [Suspect]
     Active Substance: CEFTRIAXONE SODIUM
     Indication: NEOPLASM MALIGNANT
     Dosage: T2
     Route: 064
  12. METOCLOPRAMIDE. [Suspect]
     Active Substance: METOCLOPRAMIDE
     Indication: NEOPLASM MALIGNANT
     Dosage: T2 + T3
     Route: 064
  13. PACLITAXEL. [Suspect]
     Active Substance: PACLITAXEL
     Indication: NEOPLASM MALIGNANT
     Dosage: T3
     Route: 064
  14. ETOPOSIDE. [Suspect]
     Active Substance: ETOPOSIDE
     Indication: NEOPLASM MALIGNANT
     Dosage: T2
     Route: 064
  15. APREPITANT. [Suspect]
     Active Substance: APREPITANT
     Indication: NEOPLASM MALIGNANT
     Dosage: T2 + T3
     Route: 064

REACTIONS (2)
  - Septum pellucidum agenesis [Unknown]
  - Maternal exposure during pregnancy [Unknown]
